FAERS Safety Report 13360273 (Version 1)
Quarter: 2017Q1

REPORT INFORMATION
  Report Type: Spontaneous
  Country: FR (occurrence: FR)
  Receive Date: 20170322
  Receipt Date: 20170322
  Transmission Date: 20170429
  Serious: Yes (Hospitalization, Other)
  Sender: FDA-Public Use
  Company Number: FR-PFIZER INC-2017114865

PATIENT
  Age: 58 Year
  Sex: Female

DRUGS (5)
  1. THERALENE [Suspect]
     Active Substance: TRIMEPRAZINE
     Dosage: UNK
     Route: 048
     Dates: end: 201702
  2. ZOPICLONE [Concomitant]
     Active Substance: ZOPICLONE
  3. SERESTA [Suspect]
     Active Substance: OXAZEPAM
     Dosage: 50 MG, UNK
     Route: 048
     Dates: end: 201702
  4. EFFEXOR LP [Suspect]
     Active Substance: VENLAFAXINE HYDROCHLORIDE
     Dosage: UNK
     Route: 048
     Dates: end: 201702
  5. THERALENE [Suspect]
     Active Substance: TRIMEPRAZINE
     Dosage: UNK
     Dates: start: 20170214

REACTIONS (13)
  - Bundle branch block right [Recovered/Resolved]
  - Hyperglycaemia [Recovered/Resolved]
  - Rhabdomyolysis [Unknown]
  - Coma [Recovered/Resolved]
  - Confusional state [Recovered/Resolved]
  - Acute kidney injury [Unknown]
  - Liver function test increased [Unknown]
  - Electrocardiogram QT prolonged [Recovered/Resolved]
  - Oxygen saturation decreased [Recovered/Resolved]
  - Hypoxia [Recovered/Resolved]
  - Pneumonia aspiration [Unknown]
  - Tachypnoea [Recovered/Resolved]
  - Hypothermia [Recovered/Resolved]

NARRATIVE: CASE EVENT DATE: 20170206
